FAERS Safety Report 9424086 (Version 1)
Quarter: 2013Q3

REPORT INFORMATION
  Report Type: Spontaneous
  Country: US (occurrence: US)
  Receive Date: 20130729
  Receipt Date: 20130729
  Transmission Date: 20140515
  Serious: Yes (Disabling)
  Sender: FDA-Public Use
  Company Number: US-009507513-1307USA011506

PATIENT
  Sex: Female

DRUGS (26)
  1. PROVENTIL [Suspect]
     Indication: CHRONIC OBSTRUCTIVE PULMONARY DISEASE
     Dosage: TWO PUFFS TWICE A DAY
     Route: 055
     Dates: start: 201007
  2. CLOPIDOGREL [Concomitant]
  3. COLESTIPOL HYDROCHLORIDE [Concomitant]
  4. DICLOFENAC SODIUM [Concomitant]
  5. GABAPENTIN [Concomitant]
  6. LASIX (FUROSEMIDE) [Concomitant]
  7. LANTUS [Concomitant]
  8. LOVAZA [Concomitant]
  9. METFORMIN [Concomitant]
  10. MISOPROSTOL [Concomitant]
  11. IPRATROPIUM BROMIDE [Concomitant]
  12. SINGULAIR [Concomitant]
  13. NOVOLOG [Concomitant]
  14. OMEPRAZOLE [Concomitant]
  15. PREDNISONE [Concomitant]
  16. ZOCOR [Concomitant]
  17. TRILIPIX [Concomitant]
  18. TRAMADOL HYDROCHLORIDE [Concomitant]
  19. ASPIRIN [Concomitant]
  20. ZYRTEC [Concomitant]
  21. FOLIC ACID [Concomitant]
  22. IRON (UNSPECIFIED) [Concomitant]
  23. CYANOCOBALAMIN [Concomitant]
  24. ASCORBIC ACID [Concomitant]
  25. METOPROLOL TARTRATE [Concomitant]
  26. METOPROLOL TARTRATE [Concomitant]

REACTIONS (8)
  - Pain in extremity [Unknown]
  - Local swelling [Unknown]
  - Erythema [Unknown]
  - Dyspnoea [Unknown]
  - Cough [Unknown]
  - Retching [Unknown]
  - Drug ineffective [Unknown]
  - Product packaging quantity issue [Unknown]
